FAERS Safety Report 7474284-X (Version None)
Quarter: 2011Q2

REPORT INFORMATION
  Report Type: 
  Country: None (occurrence: None)
  Receive Date: 20110511
  Receipt Date: 20110505
  Transmission Date: 20111010
  Serious: Yes (Other)
  Sender: FDA-Public Use
  Company Number: US-AMGEN-USASP2011023448

PATIENT
  Age: 43 Year
  Sex: Female

DRUGS (2)
  1. SENSIPAR [Suspect]
     Indication: HYPERPARATHYROIDISM SECONDARY
     Dosage: 30 MG, QD
  2. TEMAZ [Concomitant]
     Dosage: UNK

REACTIONS (4)
  - DEPRESSION [None]
  - AGITATION [None]
  - BLOOD CALCIUM ABNORMAL [None]
  - BLOOD PARATHYROID HORMONE ABNORMAL [None]
